FAERS Safety Report 12815030 (Version 1)
Quarter: 2016Q4

REPORT INFORMATION
  Report Type: Spontaneous
  Country: US (occurrence: US)
  Receive Date: 20161005
  Receipt Date: 20161005
  Transmission Date: 20170207
  Serious: No
  Sender: FDA-Public Use
  Company Number: US-AMGEN-USASP2016007472

PATIENT
  Age: 77 Year
  Sex: Female

DRUGS (1)
  1. PROLIA [Suspect]
     Active Substance: DENOSUMAB
     Indication: PRODUCT USED FOR UNKNOWN INDICATION
     Dosage: UNK
     Route: 065
     Dates: start: 201512

REACTIONS (6)
  - Bone swelling [Unknown]
  - Mobility decreased [Unknown]
  - Pain in jaw [Unknown]
  - Temporomandibular joint syndrome [Unknown]
  - Local swelling [Unknown]
  - Neck pain [Unknown]

NARRATIVE: CASE EVENT DATE: 201601
